FAERS Safety Report 23566147 (Version 1)
Quarter: 2024Q1

REPORT INFORMATION
  Report Type: Spontaneous
  Country: US (occurrence: None)
  Receive Date: 20240226
  Receipt Date: 20240226
  Transmission Date: 20240410
  Serious: Yes (Hospitalization)
  Sender: FDA-Public Use
  Company Number: None

PATIENT
  Sex: Female

DRUGS (6)
  1. KESIMPTA [Suspect]
     Active Substance: OFATUMUMAB
     Indication: Multiple sclerosis
     Dosage: FREQ: INJECT 20 MG UNDER THE SKIN (SUBCUTANEOUS INJECTIONS) ONCE A MONTH
     Route: 058
     Dates: start: 20230401
  2. CALCIUM [Concomitant]
     Active Substance: CALCIUM
  3. FLONASE ALGY SPR [Concomitant]
  4. GABAPENTIN [Concomitant]
     Active Substance: GABAPENTIN
  5. GRALISE [Concomitant]
     Active Substance: GABAPENTIN
  6. MULTI-VITAMIN [Concomitant]
     Active Substance: .ALPHA.-TOCOPHEROL ACETATE, DL-\ASCORBIC ACID\CYANOCOBALAMIN\FLUORIDE ION\FOLIC ACID\NIACIN\PYRIDOXI

REACTIONS (2)
  - Pulmonary embolism [None]
  - Therapy interrupted [None]
